FAERS Safety Report 22122058 (Version 1)
Quarter: 2023Q1

REPORT INFORMATION
  Report Type: Spontaneous
  Country: US (occurrence: US)
  Receive Date: 20230321
  Receipt Date: 20230321
  Transmission Date: 20230418
  Serious: Yes (Other)
  Sender: FDA-Public Use
  Company Number: US-APIL-2308758US

PATIENT
  Sex: Male

DRUGS (1)
  1. REFRESH P.M. [Suspect]
     Active Substance: MINERAL OIL\PETROLATUM
     Indication: Product used for unknown indication

REACTIONS (2)
  - Blindness [Unknown]
  - Muscle disorder [Unknown]
